FAERS Safety Report 8451197-8 (Version None)
Quarter: 2012Q2

REPORT INFORMATION
  Report Type: 
  Country: None (occurrence: None)
  Receive Date: 20120620
  Receipt Date: 20120224
  Transmission Date: 20120825
  Serious: No
  Sender: FDA-Public Use
  Company Number: US-VERTEX PHARMACEUTICALS INC.-AE-2011-004241

PATIENT
  Sex: Female
  Weight: 70.37 kg

DRUGS (6)
  1. RISPERIDONE [Concomitant]
  2. PEGASYS [Concomitant]
     Indication: HEPATITIS C
     Route: 058
     Dates: start: 20111125
  3. NEXIUM [Concomitant]
     Route: 048
  4. INCIVEK [Suspect]
     Indication: HEPATITIS C
     Route: 048
     Dates: start: 20111126
  5. RIBASPHERE [Concomitant]
     Indication: HEPATITIS C
     Route: 048
     Dates: start: 20111126
  6. ZOLOFT [Concomitant]

REACTIONS (5)
  - URTICARIA [None]
  - CHEST DISCOMFORT [None]
  - DYSPNOEA [None]
  - INJECTION SITE PRURITUS [None]
  - SKIN EXFOLIATION [None]
